FAERS Safety Report 5922289-X (Version None)
Quarter: 2008Q3

REPORT INFORMATION
  Report Type: 
  Country: None (occurrence: None)
  Receive Date: 20080909
  Receipt Date: 20080604
  Transmission Date: 20090109
  Serious: Yes (Death)
  Sender: FDA-Public Use
  Company Number: 163-20785-08060284 (0)

PATIENT
  Age: 79 Year
  Sex: Female

DRUGS (4)
  1. THALOMID [Suspect]
     Indication: MULTIPLE MYELOMA
     Dosage: 150-50MG, QD, ORAL
     Route: 048
     Dates: start: 20030724, end: 20080101
  2. THALOMID [Suspect]
  3. THALOMID [Suspect]
  4. THALOMID [Suspect]

REACTIONS (1)
  - DEATH [None]
